FAERS Safety Report 16187734 (Version 1)
Quarter: 2019Q2

REPORT INFORMATION
  Report Type: Spontaneous
  Country: ES (occurrence: ES)
  Receive Date: 20190412
  Receipt Date: 20190412
  Transmission Date: 20190711
  Serious: Yes (Other)
  Sender: FDA-Public Use
  Company Number: ES-ASTRAZENECA-2019SE51169

PATIENT
  Age: 73 Year
  Sex: Female
  Weight: 62 kg

DRUGS (1)
  1. NEXIUM MUPS [Suspect]
     Active Substance: ESOMEPRAZOLE
     Indication: DYSPHAGIA
     Route: 048
     Dates: start: 20190303, end: 20190310

REACTIONS (2)
  - Hypertransaminasaemia [Unknown]
  - Raynaud^s phenomenon [Unknown]

NARRATIVE: CASE EVENT DATE: 20190305
